FAERS Safety Report 11302433 (Version 1)
Quarter: 2015Q3

REPORT INFORMATION
  Report Type: Spontaneous
  Country: US (occurrence: None)
  Receive Date: 20150723
  Receipt Date: 20150723
  Transmission Date: 20151125
  Serious: Yes (Other)
  Sender: FDA-Public Use
  Company Number: None

PATIENT
  Age: 17 Year
  Sex: Female
  Weight: 45.81 kg

DRUGS (10)
  1. PREVACID [Concomitant]
     Active Substance: LANSOPRAZOLE
  2. TRILEPTAL [Concomitant]
     Active Substance: OXCARBAZEPINE
  3. ABILIFY [Concomitant]
     Active Substance: ARIPIPRAZOLE
  4. PROPRANOLOL [Concomitant]
     Active Substance: PROPRANOLOL\PROPRANOLOL HYDROCHLORIDE
  5. MULTI-VITAMIN [Concomitant]
     Active Substance: .ALPHA.-TOCOPHEROL ACETATE, DL-\ASCORBIC ACID\CYANOCOBALAMIN\FLUORIDE ION\FOLIC ACID\NIACIN\PYRIDOXINE\RIBOFLAVIN\THIAMINE\VITAMIN A\VITAMIN D
  6. ARIPIPRAZOLE. [Suspect]
     Active Substance: ARIPIPRAZOLE
     Indication: AFFECTIVE DISORDER
     Dosage: 1 PILL ONCE DAILY TAKEN BY MOUTH
     Route: 048
     Dates: start: 20150704, end: 20150714
  7. SYNTHROID [Concomitant]
     Active Substance: LEVOTHYROXINE SODIUM
  8. MIRALAX [Concomitant]
     Active Substance: POLYETHYLENE GLYCOL 3350
  9. FISH OIL [Concomitant]
     Active Substance: FISH OIL
  10. MELATONIN [Concomitant]
     Active Substance: MELATONIN

REACTIONS (9)
  - Product quality issue [None]
  - Abnormal behaviour [None]
  - Stress [None]
  - Seizure [None]
  - Aggression [None]
  - Product substitution issue [None]
  - Mania [None]
  - Anger [None]
  - Crying [None]

NARRATIVE: CASE EVENT DATE: 20150706
